FAERS Safety Report 4620102-4 (Version None)
Quarter: 2005Q1

REPORT INFORMATION
  Report Type: 
  Country: None (occurrence: None)
  Receive Date: 20050328
  Receipt Date: 20050317
  Transmission Date: 20050727
  Serious: Yes (Hospitalization)
  Sender: FDA-Public Use
  Company Number: DE-AMGEN-UK121313

PATIENT
  Sex: Female

DRUGS (1)
  1. AMG 099073 [Suspect]
     Indication: HYPERPARATHYROIDISM SECONDARY
     Route: 048
     Dates: start: 20041025, end: 20050116

REACTIONS (2)
  - GASTRITIS EROSIVE [None]
  - GASTROENTERITIS VIRAL [None]
